FAERS Safety Report 4741827-6 (Version None)
Quarter: 2005Q3

REPORT INFORMATION
  Report Type: 
  Country: None (occurrence: None)
  Receive Date: 20050801
  Receipt Date: 20050623
  Transmission Date: 20060218
  Serious: No
  Sender: FDA-Public Use
  Company Number: 2005PV000099

PATIENT
  Age: 52 Year
  Sex: Female
  Weight: 112.4921 kg

DRUGS (11)
  1. BYETTA [Suspect]
     Indication: DIABETES MELLITUS NON-INSULIN-DEPENDENT
     Dosage: 5 UG;BID;SC
     Route: 058
     Dates: start: 20050620
  2. AMARYL [Concomitant]
  3. METFORMIN [Concomitant]
  4. LANTUS [Concomitant]
  5. SYNTHROID [Concomitant]
  6. LOZOL [Concomitant]
  7. BIAXIN [Concomitant]
  8. ALPRAZOLAM [Concomitant]
  9. KARIVA [Concomitant]
  10. NASONEX [Concomitant]
  11. ALBUTEROL [Concomitant]

REACTIONS (3)
  - BLOOD GLUCOSE INCREASED [None]
  - FOOD CRAVING [None]
  - PYREXIA [None]
